FAERS Safety Report 13925116 (Version 1)
Quarter: 2017Q3

REPORT INFORMATION
  Report Type: Spontaneous
  Country: PT (occurrence: PT)
  Receive Date: 20170831
  Receipt Date: 20170831
  Transmission Date: 20171127
  Serious: Yes (Other)
  Sender: FDA-Public Use
  Company Number: PT-JNJFOC-20170822563

PATIENT

DRUGS (1)
  1. IBRUTINIB [Suspect]
     Active Substance: IBRUTINIB
     Indication: CHRONIC LYMPHOCYTIC LEUKAEMIA
     Route: 048

REACTIONS (11)
  - Atrial fibrillation [Unknown]
  - Haemorrhage [Unknown]
  - Hypertension [Unknown]
  - Pain [Unknown]
  - Gastrointestinal disorder [Unknown]
  - Pneumonitis [Unknown]
  - Skin disorder [Unknown]
  - Drug interaction [Unknown]
  - Haematotoxicity [Unknown]
  - Respiratory tract infection [Unknown]
  - Fatigue [Unknown]
